FAERS Safety Report 5464903-1 (Version None)
Quarter: 2007Q3

REPORT INFORMATION
  Report Type: 
  Country: None (occurrence: None)
  Receive Date: 20070921
  Receipt Date: 20070911
  Transmission Date: 20080115
  Serious: Yes (Other)
  Sender: FDA-Public Use
  Company Number: US-PFIZER INC-2007076444

PATIENT
  Sex: Female

DRUGS (8)
  1. LIPITOR [Suspect]
     Indication: BLOOD CHOLESTEROL INCREASED
     Dates: start: 20020101, end: 20030101
  2. NEURONTIN [Suspect]
     Indication: MUSCLE TWITCHING
  3. LYRICA [Suspect]
  4. PRAVACHOL [Suspect]
     Indication: BLOOD CHOLESTEROL INCREASED
  5. ZOCOR [Suspect]
     Indication: BLOOD CHOLESTEROL INCREASED
  6. CRESTOR [Suspect]
     Indication: BLOOD CHOLESTEROL INCREASED
  7. TRAZODONE HCL [Concomitant]
  8. SYNTHROID [Concomitant]

REACTIONS (11)
  - DRUG INEFFECTIVE [None]
  - DRY MOUTH [None]
  - FATIGUE [None]
  - FIBROMYALGIA [None]
  - HEADACHE [None]
  - MUSCLE TWITCHING [None]
  - MUSCULAR WEAKNESS [None]
  - NERVE INJURY [None]
  - PAIN [None]
  - PLANTAR FASCIITIS [None]
  - WEIGHT INCREASED [None]
